FAERS Safety Report 8508204-3 (Version None)
Quarter: 2012Q2

REPORT INFORMATION
  Report Type: 
  Country: None (occurrence: None)
  Receive Date: 20120405
  Receipt Date: 20090414
  Transmission Date: 20120825
  Serious: Yes (Hospitalization)
  Sender: FDA-Public Use
  Company Number: PHEH2009US03807

PATIENT

DRUGS (1)
  1. RECLAST [Suspect]
     Dosage: 5 MG ONCE;
     Dates: start: 20090319

REACTIONS (1)
  - RENAL IMPAIRMENT [None]
